FAERS Safety Report 24856013 (Version 1)
Quarter: 2025Q1

REPORT INFORMATION
  Report Type: Spontaneous
  Country: GB (occurrence: GB)
  Receive Date: 20250117
  Receipt Date: 20250117
  Transmission Date: 20250408
  Serious: Yes (Other)
  Sender: TEVA
  Company Number: GB-MHRA-TPP9626576C10095118YC1736521646378

PATIENT
  Sex: Female
  Weight: 85 kg

DRUGS (4)
  1. DOXYCYCLINE [Suspect]
     Active Substance: DOXYCYCLINE
     Indication: Ill-defined disorder
     Route: 065
     Dates: start: 20250110
  2. OTOMIZE [Concomitant]
     Indication: Ill-defined disorder
     Route: 065
     Dates: start: 20241101, end: 20241108
  3. LEVEST [Concomitant]
     Indication: Ill-defined disorder
     Dosage: TAKE ONE TABLET AT THE SAME TIME ONCE DAILY FOR...
     Route: 065
     Dates: start: 20250110
  4. AMOXICILLIN [Concomitant]
     Active Substance: AMOXICILLIN
     Indication: Ill-defined disorder
     Route: 065
     Dates: start: 20241101, end: 20241106

REACTIONS (1)
  - Lip swelling [Recovered/Resolved]

NARRATIVE: CASE EVENT DATE: 20250110
